FAERS Safety Report 4355660-0 (Version None)
Quarter: 2004Q2

REPORT INFORMATION
  Report Type: 
  Country: None (occurrence: None)
  Receive Date: 20040507
  Receipt Date: 20040422
  Transmission Date: 20050107
  Serious: Yes (Death, Hospitalization)
  Sender: FDA-Public Use
  Company Number: US-SHR-03-015497

PATIENT
  Age: 80 Year
  Sex: Female
  Weight: 54.4 kg

DRUGS (8)
  1. FLUDARA [Suspect]
     Indication: CHRONIC LYMPHOCYTIC LEUKAEMIA
     Dosage: 25 MG/M2, CYCLE X 5D, INTRAVENOUS
     Route: 042
     Dates: start: 20030922, end: 20030926
  2. RITUXAN [Concomitant]
  3. TOPROL-XL [Concomitant]
  4. ACETYLSALICYLIC ACID SRT [Concomitant]
  5. PLAVIX (CLOPIOGREL SULFATE) [Concomitant]
  6. ISORBID [Concomitant]
  7. PROCARDIA (ER) [Concomitant]
  8. VITAMIN B-12 [Concomitant]

REACTIONS (5)
  - CARDIAC FAILURE CONGESTIVE [None]
  - CHRONIC LYMPHOCYTIC LEUKAEMIA [None]
  - JAUNDICE CHOLESTATIC [None]
  - LYMPHOCYTIC LYMPHOMA [None]
  - MALIGNANT NEOPLASM PROGRESSION [None]
